FAERS Safety Report 9004885 (Version 2)
Quarter: 2013Q1

REPORT INFORMATION
  Report Type: Report from Study
  Country: US (occurrence: US)
  Receive Date: 20130109
  Receipt Date: 20130305
  Transmission Date: 20140127
  Serious: No
  Sender: FDA-Public Use
  Company Number: US-VERTEX PHARMACEUTICALS INC.-2013-000358

PATIENT
  Age: 51 Year
  Sex: Female
  Weight: 87 kg

DRUGS (9)
  1. VX-950 (TELAPREVIR) [Suspect]
     Indication: HEPATITIS C
     Dosage: 750 MG, TID
     Route: 048
     Dates: end: 20130228
  2. PEGASYS [Suspect]
     Indication: HEPATITIS C
     Dosage: 180 ?G, UNK
     Dates: end: 20130228
  3. RIBAPAK [Suspect]
     Indication: HEPATITIS C
     Dosage: 1000/DAY
     Dates: end: 20130228
  4. BENADRYL [Concomitant]
     Dosage: 25 MG, UNK
  5. METOPROLOL [Concomitant]
     Dosage: 100 MG, UNK
  6. LISINOPRIL [Concomitant]
     Dosage: 10 MG, UNK
  7. LOVAZA [Concomitant]
     Dosage: 1 G, UNK
  8. VISINE [Concomitant]
  9. AMBIEN [Concomitant]
     Dosage: 5 MG, UNK

REACTIONS (7)
  - Nipple disorder [Unknown]
  - Upper respiratory tract infection [Unknown]
  - Sinusitis [Unknown]
  - Cough [Unknown]
  - Injection site reaction [Unknown]
  - Drug ineffective [Unknown]
  - Nausea [Recovered/Resolved]
